FAERS Safety Report 13646486 (Version 2)
Quarter: 2019Q2

REPORT INFORMATION
  Report Type: Spontaneous
  Country: US (occurrence: US)
  Receive Date: 20170613
  Receipt Date: 20190523
  Transmission Date: 20190711
  Serious: No
  Sender: FDA-Public Use
  Company Number: US-PFIZER INC-2017253348

PATIENT
  Age: 62 Year
  Sex: Female
  Weight: 50 kg

DRUGS (1)
  1. DEMEROL [Suspect]
     Active Substance: MEPERIDINE HYDROCHLORIDE
     Indication: PAIN
     Dosage: UNK

REACTIONS (6)
  - Gait disturbance [Unknown]
  - Feeling abnormal [Unknown]
  - Gastric disorder [Unknown]
  - Speech disorder [Unknown]
  - Vomiting [Unknown]
  - Nausea [Unknown]
